FAERS Safety Report 4533413-8 (Version None)
Quarter: 2004Q4

REPORT INFORMATION
  Report Type: 
  Country: None (occurrence: None)
  Receive Date: 20041221
  Receipt Date: 20041211
  Transmission Date: 20050328
  Serious: Yes (Other)
  Sender: FDA-Public Use
  Company Number: BE-JNJFOC-20041102417

PATIENT
  Age: 61 Year
  Sex: Female
  Weight: 62 kg

DRUGS (8)
  1. PREPULSID [Suspect]
     Route: 049
     Dates: start: 20040927
  2. ZURCALE [Concomitant]
     Route: 049
     Dates: start: 19991101
  3. ISOPTIN [Concomitant]
     Indication: ARRHYTHMIA
     Route: 049
     Dates: start: 19850301
  4. CARDIOASPIRINE [Concomitant]
     Route: 049
     Dates: start: 19850301
  5. RIVOTRIL [Concomitant]
     Route: 049
     Dates: start: 20030501
  6. SULPIRIDE [Concomitant]
     Indication: DYSPEPSIA
     Route: 049
     Dates: start: 20040601
  7. CRESTOR [Concomitant]
     Route: 049
     Dates: start: 20040101
  8. ISOTEN [Concomitant]
     Indication: HYPERTENSION
     Route: 049
     Dates: start: 20031201

REACTIONS (3)
  - CHEST DISCOMFORT [None]
  - PALLOR [None]
  - RESPIRATORY DISORDER [None]
